FAERS Safety Report 26215380 (Version 1)
Quarter: 2025Q4

REPORT INFORMATION
  Report Type: Spontaneous
  Country: CN (occurrence: CN)
  Receive Date: 20251231
  Receipt Date: 20251231
  Transmission Date: 20260117
  Serious: Yes (Hospitalization)
  Sender: GE HEALTHCARE
  Company Number: None

PATIENT
  Age: 56 Year
  Sex: Female
  Weight: 50 kg

DRUGS (3)
  1. VISIPAQUE [Suspect]
     Active Substance: IODIXANOL
     Indication: Arterial angioplasty
     Dosage: 200 ML, TOTAL
     Route: 050
     Dates: start: 20251209
  2. VISIPAQUE [Suspect]
     Active Substance: IODIXANOL
     Indication: Angiogram
  3. GLYCOSAMINOGLYCANS [Concomitant]
     Active Substance: GLYCOSAMINOGLYCANS
     Indication: Swelling
     Dosage: UNK, QID
     Route: 061
     Dates: start: 20251204, end: 20251218

REACTIONS (8)
  - Skin infection [Recovering/Resolving]
  - Injection site haemorrhage [Recovering/Resolving]
  - Injection site vesicles [Recovering/Resolving]
  - Injection site swelling [Recovering/Resolving]
  - Infusion site extravasation [Recovering/Resolving]
  - Peripheral swelling [Recovering/Resolving]
  - Pain in extremity [Recovering/Resolving]
  - Skin exfoliation [Recovering/Resolving]

NARRATIVE: CASE EVENT DATE: 20251209
